FAERS Safety Report 15154113 (Version 4)
Quarter: 2025Q3

REPORT INFORMATION
  Report Type: Report from Study
  Country: US (occurrence: US)
  Receive Date: 20180717
  Receipt Date: 20250721
  Transmission Date: 20251020
  Serious: Yes (Death, Other)
  Sender: TAKEDA
  Company Number: US-SHIRE-US201826249

PATIENT
  Sex: Male

DRUGS (2)
  1. IDURSULFASE [Suspect]
     Active Substance: IDURSULFASE
     Indication: Mucopolysaccharidosis II
     Dosage: UNK UNK, 1/WEEK
     Dates: start: 20170113
  2. IDURSULFASE [Suspect]
     Active Substance: IDURSULFASE

REACTIONS (8)
  - Death [Fatal]
  - Urticaria [Recovered/Resolved]
  - Macroglossia [Unknown]
  - Bronchiectasis [Unknown]
  - Dyspnoea [Not Recovered/Not Resolved]
  - Product distribution issue [Unknown]
  - Product use issue [Unknown]
  - Cough [Unknown]
